FAERS Safety Report 8909379 (Version 1)
Quarter: 2012Q4

REPORT INFORMATION
  Report Type: 
  Country: QA (occurrence: QA)
  Receive Date: 20121114
  Receipt Date: 20121114
  Transmission Date: 20130627
  Serious: Yes (Hospitalization)
  Sender: FDA-Public Use
  Company Number: QA-MYLANLABS-2012S1022881

PATIENT
  Age: 60 Year
  Sex: Female

DRUGS (8)
  1. ATORVASTATIN [Suspect]
     Indication: HYPERLIPIDAEMIA
     Dosage: 20mg daily
     Route: 065
  2. DEXAMETHASONE [Interacting]
     Indication: SPINAL CORD COMPRESSION
     Route: 065
  3. OMEPRAZOLE [Interacting]
     Indication: PROPHYLAXIS AGAINST GASTROINTESTINAL ULCER
     Dosage: 20mg daily
     Route: 065
  4. CALCIUM CARBONATE [Concomitant]
     Route: 065
  5. TRAMADOL [Concomitant]
     Indication: CANCER PAIN
     Route: 065
  6. CELECOXIB [Concomitant]
     Indication: BONE PAIN
     Route: 065
  7. GABAPENTIN [Concomitant]
     Indication: NEURALGIA
     Route: 065
  8. BISACODYL [Concomitant]
     Indication: CONSTIPATION
     Route: 065

REACTIONS (2)
  - Rhabdomyolysis [Not Recovered/Not Resolved]
  - Drug interaction [Not Recovered/Not Resolved]
